FAERS Safety Report 8023830-6 (Version None)
Quarter: 2012Q1

REPORT INFORMATION
  Report Type: 
  Country: None (occurrence: None)
  Receive Date: 20120105
  Receipt Date: 20111227
  Transmission Date: 20120608
  Serious: Yes (Death, Hospitalization, Other)
  Sender: FDA-Public Use
  Company Number: JP-JNJFOC-20110811626

PATIENT
  Sex: Female
  Weight: 48 kg

DRUGS (7)
  1. NIZATIDINE [Concomitant]
     Route: 048
     Dates: start: 20071227, end: 20110809
  2. MAGNESIUM OXIDE [Concomitant]
     Route: 048
     Dates: start: 20110721, end: 20110823
  3. REMICADE [Suspect]
     Indication: CROHN'S DISEASE
     Dosage: 1ST DOSE
     Route: 042
     Dates: start: 20080414
  4. REMICADE [Suspect]
     Dosage: 23RD DOSE
     Route: 042
     Dates: start: 20110721
  5. PENTASA [Concomitant]
     Route: 048
     Dates: end: 20110823
  6. LAC-B [Concomitant]
     Route: 048
     Dates: end: 20110823
  7. DIAZEPAM [Concomitant]
     Route: 048
     Dates: start: 20110331, end: 20110816

REACTIONS (2)
  - HISTIOCYTOSIS HAEMATOPHAGIC [None]
  - EPSTEIN-BARR VIRUS INFECTION [None]
